FAERS Safety Report 19631428 (Version 1)
Quarter: 2021Q3

REPORT INFORMATION
  Report Type: Spontaneous
  Country: US (occurrence: US)
  Receive Date: 20210728
  Receipt Date: 20210728
  Transmission Date: 20211014
  Serious: No
  Sender: FDA-Public Use
  Company Number: US-IGSA-BIG0012095

PATIENT
  Age: 34 Year
  Sex: Male

DRUGS (3)
  1. HUMAN NORMAL IMMUNOGLOBULIN (IV) [Suspect]
     Active Substance: HUMAN IMMUNOGLOBULIN G
     Dosage: 0.4 GRAM PER KILOGRAM, Q.WK.
     Route: 042
  2. HUMAN NORMAL IMMUNOGLOBULIN (IV) [Suspect]
     Active Substance: HUMAN IMMUNOGLOBULIN G
     Indication: AUTOIMMUNE NEUROPATHY
     Dosage: 0.4 GRAM PER KILOGRAM, Q.O.WK.
     Route: 042
  3. HUMAN NORMAL IMMUNOGLOBULIN (IV) [Suspect]
     Active Substance: HUMAN IMMUNOGLOBULIN G
     Dosage: 0.4 GRAM PER KILOGRAM, QD
     Route: 042

REACTIONS (1)
  - Alopecia areata [Not Recovered/Not Resolved]
